FAERS Safety Report 6754174-8 (Version None)
Quarter: 2010Q2

REPORT INFORMATION
  Report Type: 
  Country: None (occurrence: None)
  Receive Date: 20100603
  Receipt Date: 20100524
  Transmission Date: 20101027
  Serious: Yes (Hospitalization)
  Sender: FDA-Public Use
  Company Number: PHHY2010US33665

PATIENT
  Sex: Male

DRUGS (3)
  1. LESCOL XL [Suspect]
     Dosage: 80 MG
     Route: 048
  2. PREDNISONE [Concomitant]
     Dosage: 5 MG
  3. MONOPRIL [Concomitant]
     Dosage: 10 MG

REACTIONS (2)
  - BLOOD CHOLESTEROL INCREASED [None]
  - PANCREATIC DISORDER [None]
